FAERS Safety Report 4333212-6 (Version None)
Quarter: 2004Q2

REPORT INFORMATION
  Report Type: 
  Country: None (occurrence: None)
  Receive Date: 20040405
  Receipt Date: 20040405
  Transmission Date: 20050107
  Serious: Yes (Other)
  Sender: FDA-Public Use
  Company Number: None

PATIENT
  Sex: Female
  Weight: 107.9561 kg

DRUGS (1)
  1. PAXIL [Suspect]
     Indication: DEPRESSION
     Dosage: 1 TABLET DAILY ORAL
     Route: 048
     Dates: start: 20010801, end: 20040324

REACTIONS (6)
  - ASTHENIA [None]
  - CHILLS [None]
  - DISTURBANCE IN ATTENTION [None]
  - DRUG WITHDRAWAL SYNDROME [None]
  - DRY MOUTH [None]
  - IMPAIRED WORK ABILITY [None]
